FAERS Safety Report 26200353 (Version 1)
Quarter: 2025Q4

REPORT INFORMATION
  Report Type: Report from Study
  Country: CA (occurrence: CA)
  Receive Date: 20251225
  Receipt Date: 20251225
  Transmission Date: 20260118
  Serious: Yes (Hospitalization)
  Sender: REGENERON
  Company Number: CA-BAYER-2025A116508

PATIENT
  Age: 64 Year
  Sex: Female

DRUGS (1)
  1. EYLEA [Suspect]
     Active Substance: AFLIBERCEPT
     Indication: Diabetic retinal oedema
     Dosage: INTRAVITREAL INJECTION TO LEFT EYE, SOLUTION FOR INJECTION, 40 MG/ML
     Route: 031
     Dates: end: 2025

REACTIONS (1)
  - Hospitalisation [Recovered/Resolved]

NARRATIVE: CASE EVENT DATE: 20250101
